FAERS Safety Report 8237434-3 (Version None)
Quarter: 2012Q1

REPORT INFORMATION
  Report Type: 
  Country: None (occurrence: None)
  Receive Date: 20120327
  Receipt Date: 20120319
  Transmission Date: 20120608
  Serious: Yes (Hospitalization, Other)
  Sender: FDA-Public Use
  Company Number: US-BAYER-2011-118995

PATIENT
  Age: 29 Year
  Sex: Female
  Weight: 59 kg

DRUGS (6)
  1. LEXAPRO [Concomitant]
     Indication: ANXIETY
  2. YAZ [Suspect]
     Dosage: UNK
     Route: 048
     Dates: start: 20040101, end: 20090101
  3. LEXAPRO [Concomitant]
     Indication: DEPRESSION
     Dosage: UNK
     Dates: start: 20031101, end: 20060101
  4. SYMAX [Concomitant]
     Dosage: UNK
     Dates: start: 20060724
  5. YASMIN [Suspect]
     Dosage: UNK
     Route: 048
     Dates: start: 20040101, end: 20090101
  6. PHENTERMINE [Concomitant]
     Dosage: UNK
     Dates: start: 20070708

REACTIONS (6)
  - INJURY [None]
  - GALLBLADDER DISORDER [None]
  - PAIN [None]
  - CHOLECYSTITIS CHRONIC [None]
  - BILIARY DYSKINESIA [None]
  - EMOTIONAL DISTRESS [None]
